FAERS Safety Report 21449394 (Version 2)
Quarter: 2022Q4

REPORT INFORMATION
  Report Type: Spontaneous
  Country: IN (occurrence: IN)
  Receive Date: 20221013
  Receipt Date: 20221019
  Transmission Date: 20230112
  Serious: Yes (Life-Threatening, Hospitalization, Congenital Anomaly, Other)
  Sender: FDA-Public Use
  Company Number: IN-MLMSERVICE-20220926-3817420-1

PATIENT
  Age: 45 Year
  Sex: Male
  Weight: 65 kg

DRUGS (12)
  1. ONDANSETRON [Suspect]
     Active Substance: ONDANSETRON
     Indication: Premedication
  2. SUCCINYLCHOLINE CHLORIDE [Suspect]
     Active Substance: SUCCINYLCHOLINE CHLORIDE
     Indication: Neuromuscular blockade
     Route: 042
  3. SEVOFLURANE [Suspect]
     Active Substance: SEVOFLURANE
     Indication: Maintenance of anaesthesia
     Dosage: STRENGTH: 2% SEVOFLURANE IN 50% AIR/OXYGEN MIXTURE
  4. PROPOFOL [Concomitant]
     Active Substance: PROPOFOL
     Indication: Induction of anaesthesia
  5. MIDAZOLAM [Concomitant]
     Active Substance: MIDAZOLAM
     Indication: Premedication
     Route: 042
  6. LIDOCAINE HYDROCHLORIDE [Concomitant]
     Active Substance: LIDOCAINE HYDROCHLORIDE
     Indication: Premedication
  7. ATRACURIUM [Concomitant]
     Active Substance: ATRACURIUM
     Indication: Maintenance of anaesthesia
     Dosage: INTERMITTENT BOLUSES
  8. FENTANYL [Concomitant]
     Active Substance: FENTANYL
     Indication: Maintenance of anaesthesia
  9. ONDANSETRON [Suspect]
     Active Substance: ONDANSETRON
     Indication: Induction of anaesthesia
  10. SUCCINYLCHOLINE CHLORIDE [Suspect]
     Active Substance: SUCCINYLCHOLINE CHLORIDE
     Indication: Induction of anaesthesia
     Route: 042
  11. SEVOFLURANE [Suspect]
     Active Substance: SEVOFLURANE
     Indication: Induction of anaesthesia
     Dosage: STRENGTH: 2% SEVOFLURANE IN 50% AIR/OXYGEN MIXTURE
  12. FENTANYL [Concomitant]
     Active Substance: FENTANYL
     Indication: Maintenance of anaesthesia
     Dosage: INTERMITTENT BOLUSES

REACTIONS (6)
  - Stress cardiomyopathy [Recovered/Resolved]
  - Ventricular tachyarrhythmia [Recovered/Resolved]
  - Cardiac arrest [Recovered/Resolved]
  - Condition aggravated [Recovered/Resolved]
  - Long QT syndrome congenital [Recovered/Resolved]
  - Torsade de pointes [Recovered/Resolved]
